FAERS Safety Report 4681301-9 (Version None)
Quarter: 2005Q2

REPORT INFORMATION
  Report Type: 
  Country: None (occurrence: None)
  Receive Date: 20050603
  Receipt Date: 20050525
  Transmission Date: 20051028
  Serious: Yes (Hospitalization)
  Sender: FDA-Public Use
  Company Number: JP-ROCHE-405919

PATIENT
  Age: 72 Year
  Sex: Male

DRUGS (3)
  1. TAMIFLU [Suspect]
     Route: 048
     Dates: start: 20050308, end: 20050312
  2. DAONIL [Concomitant]
     Indication: DRUG USE FOR UNKNOWN INDICATION
     Route: 048
     Dates: start: 20020615
  3. MELBIN [Concomitant]
     Indication: DRUG USE FOR UNKNOWN INDICATION
     Route: 048
     Dates: start: 20020615

REACTIONS (1)
  - INTERSTITIAL LUNG DISEASE [None]
